FAERS Safety Report 24240160 (Version 1)
Quarter: 2024Q3

REPORT INFORMATION
  Report Type: Spontaneous
  Country: US (occurrence: None)
  Receive Date: 20240821
  Receipt Date: 20240821
  Transmission Date: 20241016
  Serious: Yes (Hospitalization)
  Sender: Public
  Company Number: None

PATIENT
  Age: 63 Year
  Sex: Female

DRUGS (1)
  1. SKYRIZI [Suspect]
     Active Substance: RISANKIZUMAB-RZAA
     Indication: Crohn^s disease
     Dosage: OTHER FREQUENCY : EVERY 8 WEEKS;?

REACTIONS (6)
  - Crohn^s disease [None]
  - Drug ineffective [None]
  - Anxiety [None]
  - Cognitive disorder [None]
  - Sleep disorder [None]
  - Bacterial vulvovaginitis [None]
